FAERS Safety Report 4924017-3 (Version None)
Quarter: 2006Q1

REPORT INFORMATION
  Report Type: 
  Country: None (occurrence: None)
  Receive Date: 20060221
  Receipt Date: 20060208
  Transmission Date: 20060701
  Serious: Yes (Other)
  Sender: FDA-Public Use
  Company Number: 220142

PATIENT
  Age: 12 Year
  Sex: Female

DRUGS (2)
  1. SOMATROPIN (SOMATROPIN) [Suspect]
     Indication: GROWTH RETARDATION
     Dates: start: 20050601
  2. LUPRON [Concomitant]

REACTIONS (1)
  - SPINAL CORD DISORDER [None]
